FAERS Safety Report 21021656 (Version 1)
Quarter: 2022Q2

REPORT INFORMATION
  Report Type: Spontaneous
  Country: CH (occurrence: CH)
  Receive Date: 20220629
  Receipt Date: 20220629
  Transmission Date: 20220721
  Serious: Yes (Other)
  Sender: FDA-Public Use
  Company Number: None

PATIENT
  Age: 71 Year
  Sex: Male

DRUGS (16)
  1. CYCLOPHOSPHAMIDE [Suspect]
     Active Substance: CYCLOPHOSPHAMIDE
     Indication: Diffuse large B-cell lymphoma
     Dosage: UNK, INTRAVENOUS OTHERWISE NOT SPECIFIED, 1-3 CYCLES OF DA-R-EPOCH CHEMOTHERAPY
     Route: 042
  2. CYCLOPHOSPHAMIDE [Suspect]
     Active Substance: CYCLOPHOSPHAMIDE
     Dosage: UNK, CYCLICAL, INTRAVENOUS OTHERWISE NOT SPECIFIED, 4TH CYCLE OF DA-R-EPOCH CHEMOTHERAPY
     Route: 042
     Dates: start: 20220510
  3. VINCRISTINE [Suspect]
     Active Substance: VINCRISTINE
     Indication: Diffuse large B-cell lymphoma
     Dosage: UNK,INTRAVENOUS OTHERWISE NOT SPECIFIED, 1-3 CYCLES OF DA-R-EPOCH CHEMOTHERAPY
     Route: 042
  4. VINCRISTINE [Suspect]
     Active Substance: VINCRISTINE
     Dosage: UNK UNK, CYCLICAL, INTRAVENOUS OTHERWISE NOT SPECIFIED,4TH CYCLE OF DA-R-EPOCH CHEMOTHERAPY
     Route: 042
     Dates: start: 20220510
  5. DOXORUBICIN HYDROCHLORIDE [Suspect]
     Active Substance: DOXORUBICIN HYDROCHLORIDE
     Indication: Diffuse large B-cell lymphoma
     Dosage: UNK UNK, CYCLICAL, INTRAVENOUS OTHERWISE NOT SPECIFIED,4TH CYCLE OF DA-R-EPOCH CHEMOTHERAPY
     Route: 042
     Dates: start: 20220510
  6. DOXORUBICIN HYDROCHLORIDE [Suspect]
     Active Substance: DOXORUBICIN HYDROCHLORIDE
     Dosage: UNK,INTRAVENOUS OTHERWISE NOT SPECIFIED, 1-3 CYCLES OF DA-R-EPOCH CHEMOTHERAPY
     Route: 042
  7. ETOPOPHOS [Suspect]
     Active Substance: ETOPOSIDE PHOSPHATE
     Indication: Diffuse large B-cell lymphoma
     Dosage: UNK,INTRAVENOUS OTHERWISE NOT SPECIFIED, 1-3 CYCLES OF DA-R-EPOCH CHEMOTHERAPY
     Route: 042
  8. ETOPOPHOS [Suspect]
     Active Substance: ETOPOSIDE PHOSPHATE
     Dosage: UNK UNK, CYCLICAL, INTRAVENOUS OTHERWISE NOT SPECIFIED,4TH CYCLE OF DA-R-EPOCH CHEMOTHERAPY
     Route: 042
     Dates: start: 20220510
  9. MABTHERA [Suspect]
     Active Substance: RITUXIMAB
     Indication: Diffuse large B-cell lymphoma
     Dosage: UNK,INTRAVENOUS OTHERWISE NOT SPECIFIED, 1-3 CYCLES OF DA-R-EPOCH CHEMOTHERAPY
     Route: 042
  10. MABTHERA [Suspect]
     Active Substance: RITUXIMAB
     Dosage: UNK UNK, CYCLICAL, INTRAVENOUS OTHERWISE NOT SPECIFIED,4TH CYCLE OF DA-R-EPOCH CHEMOTHERAPY
     Route: 042
     Dates: start: 20220510
  11. PREDNISONE [Suspect]
     Active Substance: PREDNISONE
     Indication: Diffuse large B-cell lymphoma
     Dosage: UNK,1-3 CYCLES OF DA-R-EPOCH CHEMOTHERAPY
     Route: 048
  12. PREDNISONE [Suspect]
     Active Substance: PREDNISONE
     Dosage: UNK UNK, CYCLICAL,4TH CYCLE OF DA-R-EPOCH CHEMOTHERAPY
     Route: 048
     Dates: start: 20220510
  13. SULFAMETHOXAZOLE\TRIMETHOPRIM [Concomitant]
     Active Substance: SULFAMETHOXAZOLE\TRIMETHOPRIM
     Indication: Product used for unknown indication
     Dosage: UNK
     Route: 065
  14. VALACYCLOVIR HYDROCHLORIDE [Concomitant]
     Active Substance: VALACYCLOVIR HYDROCHLORIDE
     Indication: Product used for unknown indication
     Dosage: UNK
     Route: 065
  15. DIFLUCAN [Concomitant]
     Active Substance: FLUCONAZOLE
     Indication: Product used for unknown indication
     Dosage: UNK
     Route: 065
  16. NEULASTA [Concomitant]
     Active Substance: PEGFILGRASTIM
     Indication: Product used for unknown indication
     Dosage: UNK
     Route: 065

REACTIONS (2)
  - Administration site extravasation [Recovered/Resolved]
  - Infusion site thrombosis [Recovered/Resolved]

NARRATIVE: CASE EVENT DATE: 20220514
